FAERS Safety Report 7013995-7 (Version None)
Quarter: 2010Q3

REPORT INFORMATION
  Report Type: 
  Country: None (occurrence: None)
  Receive Date: 20100926
  Receipt Date: 20100914
  Transmission Date: 20110219
  Serious: Yes (Other)
  Sender: FDA-Public Use
  Company Number: US-BRISTOL-MYERS SQUIBB COMPANY-15284888

PATIENT
  Age: 4 Decade
  Sex: Male

DRUGS (3)
  1. ONGLYZA [Suspect]
  2. LISINOPRIL [Suspect]
  3. LOPID [Suspect]

REACTIONS (1)
  - PANCREATITIS [None]
